FAERS Safety Report 4580291-7 (Version None)
Quarter: 2005Q1

REPORT INFORMATION
  Report Type: 
  Country: None (occurrence: None)
  Receive Date: 20050127
  Receipt Date: 20041028
  Transmission Date: 20050727
  Serious: No
  Sender: FDA-Public Use
  Company Number: USA040158069

PATIENT
  Age: 9 Year
  Sex: Female
  Weight: 27 kg

DRUGS (1)
  1. STRATTERA [Suspect]
     Indication: ATTENTION DEFICIT/HYPERACTIVITY DISORDER
     Dosage: 40 MG/DAY
     Dates: start: 20030101

REACTIONS (7)
  - AGGRESSION [None]
  - CRYING [None]
  - DRUG INEFFECTIVE [None]
  - EDUCATIONAL PROBLEM [None]
  - EMOTIONAL DISORDER [None]
  - IRRITABILITY [None]
  - WEIGHT INCREASED [None]
